FAERS Safety Report 16241912 (Version 2)
Quarter: 2019Q2

REPORT INFORMATION
  Report Type: Report from Study
  Country: US (occurrence: US)
  Receive Date: 20190426
  Receipt Date: 20190507
  Transmission Date: 20190711
  Serious: Yes (Hospitalization, Other)
  Sender: FDA-Public Use
  Company Number: US-ALEXION PHARMACEUTICALS INC.-A201906178

PATIENT
  Sex: Male

DRUGS (2)
  1. SOLIRIS [Suspect]
     Active Substance: ECULIZUMAB
     Indication: MYASTHENIA GRAVIS
     Dosage: UNK
     Route: 065
     Dates: start: 201808
  2. SOLIRIS [Suspect]
     Active Substance: ECULIZUMAB
     Dosage: UNK, Q2W
     Route: 065

REACTIONS (10)
  - Facial paralysis [Unknown]
  - Gait inability [Unknown]
  - Dropped head syndrome [Unknown]
  - Myasthenia gravis crisis [Unknown]
  - Asthenia [Unknown]
  - Dyspnoea [Unknown]
  - Speech disorder [Unknown]
  - Drug resistance [Unknown]
  - Drug ineffective [Unknown]
  - Dysphagia [Unknown]

NARRATIVE: CASE EVENT DATE: 201812
